FAERS Safety Report 6290912-9 (Version None)
Quarter: 2009Q3

REPORT INFORMATION
  Report Type: 
  Country: None (occurrence: None)
  Receive Date: 20090730
  Receipt Date: 20090721
  Transmission Date: 20100115
  Serious: Yes (Hospitalization)
  Sender: FDA-Public Use
  Company Number: PHHY2009JP30525

PATIENT
  Sex: Female
  Weight: 32 kg

DRUGS (11)
  1. DIOVAN [Suspect]
     Indication: HYPERTENSION
     Dosage: 80 MG, QD
     Route: 048
     Dates: start: 20080707
  2. ATELEC [Concomitant]
     Indication: HYPERTENSION
     Dosage: 10 MG, UNK
     Route: 048
  3. MAGMITT KENEI [Concomitant]
     Dosage: 500 MG, UNK
     Route: 048
     Dates: start: 20080707
  4. SIGMART [Concomitant]
     Dosage: 10 MG, UNK
     Route: 048
     Dates: start: 20080707
  5. OZEX [Concomitant]
     Dosage: 300 MG, UNK
     Route: 048
     Dates: start: 20090220, end: 20090304
  6. BISOLVON [Concomitant]
     Dosage: 0.9 MG, UNK
     Dates: start: 20090202, end: 20090304
  7. MEPTIN [Concomitant]
     Dosage: 0.9 MG, UNK
     Dates: start: 20090202, end: 20090304
  8. RHEUMATREX [Concomitant]
     Dosage: 4 MG, UNK
     Route: 048
     Dates: start: 20090221
  9. BREDININ [Concomitant]
     Dosage: 200 MG, UNK
     Route: 048
     Dates: start: 20090204
  10. TAKEPRON [Concomitant]
     Dosage: 15 MG, UNK
     Route: 048
     Dates: start: 20090221
  11. BENET [Concomitant]
     Dosage: 2.5 MG, UNK
     Route: 048
     Dates: start: 20090221

REACTIONS (3)
  - CELL MARKER INCREASED [None]
  - INTERSTITIAL LUNG DISEASE [None]
  - RESPIRATORY DISTRESS [None]
